FAERS Safety Report 4405400-1 (Version None)
Quarter: 2004Q3

REPORT INFORMATION
  Report Type: 
  Country: None (occurrence: None)
  Receive Date: 20040723
  Receipt Date: 20030806
  Transmission Date: 20050211
  Serious: No
  Sender: FDA-Public Use
  Company Number: US-GLAXOSMITHKLINE-A0419946A

PATIENT
  Age: 60 Year
  Sex: Female
  Weight: 96.8 kg

DRUGS (5)
  1. AVANDIA [Suspect]
     Route: 048
     Dates: start: 19990707
  2. LANTUS [Concomitant]
     Dosage: 15U PER DAY
  3. FOSAMAX [Concomitant]
     Route: 048
  4. TENORMIN [Concomitant]
  5. DYAZIDE [Concomitant]
     Route: 048

REACTIONS (2)
  - ALANINE AMINOTRANSFERASE INCREASED [None]
  - ASPARTATE AMINOTRANSFERASE INCREASED [None]
